FAERS Safety Report 8820935 (Version 3)
Quarter: 2013Q2

REPORT INFORMATION
  Report Type: Spontaneous
  Country: US (occurrence: US)
  Receive Date: 20121002
  Receipt Date: 20130514
  Transmission Date: 20140414
  Serious: Yes (Hospitalization, Disabling, Other)
  Sender: FDA-Public Use
  Company Number: US-009507513-1206USA00829

PATIENT
  Sex: Female
  Weight: 76.19 kg

DRUGS (7)
  1. FOSAMAX [Suspect]
     Indication: OSTEOPOROSIS
     Dosage: 10 MG, QD
     Route: 048
     Dates: start: 19980123, end: 20000425
  2. FOSAMAX [Suspect]
     Indication: OSTEOPOROSIS
     Dosage: 70 MG, QW
     Route: 048
     Dates: start: 20061206, end: 200811
  3. FOSAMAX [Suspect]
     Indication: OSTEOPOROSIS
     Dosage: UNK
     Dates: start: 20081113, end: 20120505
  4. FLUCONAZOLE [Concomitant]
     Indication: HYPERSENSITIVITY
     Dosage: UNK, PRN
     Dates: start: 2000
  5. FLUTICASONE [Concomitant]
     Indication: HYPERSENSITIVITY
     Dosage: UNK
     Dates: start: 200703
  6. CITRICAL [Concomitant]
     Dosage: UNK, QD
     Dates: start: 1998
  7. CENTRUM SILVER [Concomitant]
     Dosage: UNK, QD
     Dates: start: 1998

REACTIONS (17)
  - Femoral neck fracture [Not Recovered/Not Resolved]
  - Open reduction of fracture [Not Recovered/Not Resolved]
  - Osteoporosis [Not Recovered/Not Resolved]
  - Surgery [Unknown]
  - Osteonecrosis of jaw [Unknown]
  - Periodontal disease [Not Recovered/Not Resolved]
  - Periodontitis [Not Recovered/Not Resolved]
  - Osteopenia [Unknown]
  - Blood cholesterol increased [Unknown]
  - Type 2 diabetes mellitus [Unknown]
  - Arthritis [Unknown]
  - Skin disorder [Unknown]
  - Adverse event [Unknown]
  - Hypertension [Unknown]
  - Cardiac disorder [Unknown]
  - Oestrogen deficiency [Unknown]
  - Arthralgia [Unknown]
